FAERS Safety Report 25245056 (Version 1)
Quarter: 2025Q2

REPORT INFORMATION
  Report Type: Spontaneous
  Country: US (occurrence: None)
  Receive Date: 20250425
  Receipt Date: 20250425
  Transmission Date: 20250716
  Serious: Yes (Hospitalization, Disabling)
  Sender: FDA-CTU
  Company Number: None

PATIENT
  Age: 84 Year
  Sex: Female
  Weight: 81 kg

DRUGS (16)
  1. VABYSMO [Suspect]
     Active Substance: FARICIMAB-SVOA
     Indication: Macular degeneration
     Route: 047
     Dates: start: 20220623, end: 20240323
  2. OMEPRAZOLE [Concomitant]
     Active Substance: OMEPRAZOLE
  3. ADVAIR HFA [Concomitant]
     Active Substance: FLUTICASONE PROPIONATE\SALMETEROL XINAFOATE
  4. Latangprost [Concomitant]
  5. Astelin Spray [Concomitant]
  6. ALBUTEROL [Concomitant]
     Active Substance: ALBUTEROL
  7. LEVOTHYROXINE [Concomitant]
     Active Substance: LEVOTHYROXINE
  8. METOPROLOL [Concomitant]
     Active Substance: METOPROLOL
  9. AMLODIPINE [Concomitant]
     Active Substance: AMLODIPINE BESYLATE
  10. SPIRONOLACTONE [Concomitant]
     Active Substance: SPIRONOLACTONE
  11. DORZOLAMIDE\TIMOLOL [Concomitant]
     Active Substance: DORZOLAMIDE\TIMOLOL
  12. Tobramycin-Dexamet (left eye) [Concomitant]
  13. MAGNESIUM [Concomitant]
     Active Substance: MAGNESIUM
  14. VITAMIN D3 [Concomitant]
     Active Substance: CHOLECALCIFEROL
  15. Areds 2 (presservision) [Concomitant]
  16. Tylenol when needed [Concomitant]

REACTIONS (4)
  - Vision blurred [None]
  - Endophthalmitis [None]
  - Visual impairment [None]
  - Blindness [None]

NARRATIVE: CASE EVENT DATE: 20240424
